FAERS Safety Report 24240584 (Version 1)
Quarter: 2024Q3

REPORT INFORMATION
  Report Type: Spontaneous
  Country: GB (occurrence: GB)
  Receive Date: 20240822
  Receipt Date: 20240822
  Transmission Date: 20241017
  Serious: Yes (Hospitalization, Other)
  Sender: AMGEN
  Company Number: GB-AMGEN-GBRSP2024162567

PATIENT
  Age: 38 Year
  Sex: Female
  Weight: 61 kg

DRUGS (1)
  1. ADALIMUMAB [Suspect]
     Active Substance: ADALIMUMAB
     Indication: Adverse drug reaction
     Dosage: 40 MILLIGRAM, Q2WK
     Route: 065
     Dates: end: 20240814

REACTIONS (2)
  - Maternal exposure during breast feeding [Unknown]
  - Staphylococcal infection [Recovering/Resolving]

NARRATIVE: CASE EVENT DATE: 20231206
